FAERS Safety Report 25826982 (Version 1)
Quarter: 2025Q3

REPORT INFORMATION
  Report Type: Report from Study
  Country: US (occurrence: US)
  Receive Date: 20250920
  Receipt Date: 20250920
  Transmission Date: 20251020
  Serious: Yes (Hospitalization)
  Sender: UNITED THERAPEUTICS
  Company Number: US-UNITED THERAPEUTICS-UNT-2025-031297

PATIENT
  Age: 6 Year
  Sex: Male
  Weight: 19.4 kg

DRUGS (18)
  1. UNITUXIN [Suspect]
     Active Substance: DINUTUXIMAB
     Indication: Neuroblastoma
     Route: 041
  2. UNITUXIN [Suspect]
     Active Substance: DINUTUXIMAB
     Route: 041
  3. UNITUXIN [Suspect]
     Active Substance: DINUTUXIMAB
     Route: 041
  4. UNITUXIN [Suspect]
     Active Substance: DINUTUXIMAB
     Route: 041
  5. UNITUXIN [Suspect]
     Active Substance: DINUTUXIMAB
     Route: 041
  6. CARBOPLATIN [Suspect]
     Active Substance: CARBOPLATIN
     Indication: Neuroblastoma
  7. CYCLOPHOSPHAMIDE [Suspect]
     Active Substance: CYCLOPHOSPHAMIDE
     Indication: Neuroblastoma
  8. ETOPOSIDE [Suspect]
     Active Substance: ETOPOSIDE
     Indication: Neuroblastoma
  9. FILGRASTIM [Suspect]
     Active Substance: FILGRASTIM
     Indication: Neuroblastoma
  10. ACCUTANE [Suspect]
     Active Substance: ISOTRETINOIN
     Indication: Neuroblastoma
  11. MELPHALAN [Suspect]
     Active Substance: MELPHALAN
     Indication: Neuroblastoma
  12. MESNA [Suspect]
     Active Substance: MESNA
     Indication: Neuroblastoma
  13. LEUKINE [Suspect]
     Active Substance: SARGRAMOSTIM
     Indication: Neuroblastoma
  14. THIOTEPA [Suspect]
     Active Substance: THIOTEPA
     Indication: Neuroblastoma
  15. SEPTRA [Suspect]
     Active Substance: SULFAMETHOXAZOLE\TRIMETHOPRIM
     Indication: Product used for unknown indication
  16. TEMOZOLOMIDE [Concomitant]
     Active Substance: TEMOZOLOMIDE
     Indication: Neuroblastoma
  17. CAMPTOSAR [Concomitant]
     Active Substance: IRINOTECAN HYDROCHLORIDE
     Indication: Neuroblastoma
  18. AMOXICILLIN [Concomitant]
     Active Substance: AMOXICILLIN
     Indication: Product used for unknown indication

REACTIONS (2)
  - Blood bilirubin increased [Recovering/Resolving]
  - Viraemia [Recovering/Resolving]

NARRATIVE: CASE EVENT DATE: 20250815
